FAERS Safety Report 7588602-5 (Version None)
Quarter: 2011Q2

REPORT INFORMATION
  Report Type: 
  Country: None (occurrence: None)
  Receive Date: 20110603
  Receipt Date: 20110411
  Transmission Date: 20111010
  Serious: No
  Sender: FDA-Public Use
  Company Number: 2011SP016515

PATIENT
  Age: 43 Year
  Sex: Female

DRUGS (5)
  1. DIOVAN [Concomitant]
  2. LIPITOR [Concomitant]
  3. SAPHRIS [Suspect]
     Indication: AFFECTIVE DISORDER
     Dosage: 5 MG;BID;PO
     Route: 048
     Dates: start: 20091228, end: 20100101
  4. SEROQUEL XR [Concomitant]
  5. LEXAPRO [Concomitant]

REACTIONS (4)
  - DRUG PRESCRIBING ERROR [None]
  - VOMITING [None]
  - NAUSEA [None]
  - INAPPROPRIATE SCHEDULE OF DRUG ADMINISTRATION [None]
